FAERS Safety Report 13523191 (Version 1)
Quarter: 2017Q2

REPORT INFORMATION
  Report Type: Spontaneous
  Country: US (occurrence: US)
  Receive Date: 20170508
  Receipt Date: 20170508
  Transmission Date: 20170830
  Serious: No
  Sender: FDA-Public Use
  Company Number: US-ARALEZ PHARMACEUTICALS R+D INC.-ARA-TP-US-2017-326

PATIENT
  Age: 64 Year
  Sex: Female
  Weight: 68.55 kg

DRUGS (3)
  1. CRESTOR [Suspect]
     Active Substance: ROSUVASTATIN CALCIUM
     Indication: BLOOD CHOLESTEROL
     Route: 048
     Dates: start: 2014, end: 201702
  2. LOVAZA [Concomitant]
     Active Substance: OMEGA-3-ACID ETHYL ESTERS
     Indication: SUPPLEMENTATION THERAPY
  3. TOPROL XL [Suspect]
     Active Substance: METOPROLOL SUCCINATE
     Indication: PRODUCT USED FOR UNKNOWN INDICATION

REACTIONS (7)
  - Myalgia [Unknown]
  - Dry eye [Unknown]
  - Arrhythmia [Unknown]
  - Bone pain [Unknown]
  - Muscle spasms [Unknown]
  - Hypercholesterolaemia [Unknown]
  - Insomnia [Unknown]

NARRATIVE: CASE EVENT DATE: 2016
